FAERS Safety Report 9296146 (Version 1)
Quarter: 2013Q2

REPORT INFORMATION
  Report Type: Spontaneous
  Country: GB (occurrence: None)
  Receive Date: 20130514
  Receipt Date: 20130514
  Transmission Date: 20140414
  Serious: Yes (Disabling, Other)
  Sender: FDA-Public Use
  Company Number: GER/UKI/13/0029498

PATIENT
  Age: 52 Year
  Sex: Female
  Weight: 62.59 kg

DRUGS (4)
  1. TERBINAFINE (TERBINAFINE) [Suspect]
     Indication: FUNGAL INFECTION
     Route: 048
     Dates: start: 20120121, end: 20130422
  2. RITALIN (METHYLPHENIDATE HYDROCHLORIDE) [Concomitant]
  3. SERTRALINE (SERTRALINE) [Concomitant]
  4. ZOPICLONE (ZOPICLONE) [Concomitant]

REACTIONS (3)
  - Dysgeusia [None]
  - Abdominal discomfort [None]
  - Quality of life decreased [None]
